FAERS Safety Report 10635658 (Version 2)
Quarter: 2014Q4

REPORT INFORMATION
  Report Type: Report from Study
  Country: GB (occurrence: GB)
  Receive Date: 20141205
  Receipt Date: 20141205
  Transmission Date: 20150529
  Serious: Yes (Other)
  Sender: FDA-Public Use
  Company Number: GB-CELGENE-167-21880-13060807

PATIENT
  Age: 60 Year
  Sex: Male

DRUGS (5)
  1. CYCLOPHOSPHAMIDE. [Suspect]
     Active Substance: CYCLOPHOSPHAMIDE
     Indication: PLASMA CELL MYELOMA
     Dosage: 500 MILLIGRAM
     Route: 048
     Dates: start: 20120313, end: 20121008
  2. REVLIMID [Suspect]
     Active Substance: LENALIDOMIDE
     Indication: PLASMA CELL MYELOMA
     Dosage: 475MG, 525MG, 525MG AND 525MG
     Route: 048
     Dates: start: 20120313, end: 20120703
  3. BLOOD TRANSFUSION [Concomitant]
     Active Substance: WHOLE BLOOD
  4. DEXAMETHASONE. [Suspect]
     Active Substance: DEXAMETHASONE
     Dosage: 20 MILLIGRAM
     Route: 048
     Dates: start: 20120313, end: 20121008
  5. BORTEZOMIB [Suspect]
     Active Substance: BORTEZOMIB
     Indication: PLASMA CELL MYELOMA
     Dosage: 5.2 MILLIGRAM
     Route: 041
     Dates: start: 20120731, end: 20121008

REACTIONS (1)
  - Tonsil cancer [Recovered/Resolved with Sequelae]

NARRATIVE: CASE EVENT DATE: 20120725
